FAERS Safety Report 11714025 (Version 3)
Quarter: 2015Q4

REPORT INFORMATION
  Report Type: Spontaneous
  Country: JP (occurrence: JP)
  Receive Date: 20151109
  Receipt Date: 20151229
  Transmission Date: 20160304
  Serious: Yes (Life-Threatening, Disabling, Other)
  Sender: FDA-Public Use
  Company Number: JP-BRISTOL-MYERS SQUIBB COMPANY-BMS-2015-074700

PATIENT
  Age: 79 Year
  Sex: Male
  Weight: 43 kg

DRUGS (3)
  1. ERBITUX [Suspect]
     Active Substance: CETUXIMAB
     Indication: HYPOPHARYNGEAL CANCER
     Dosage: 250 MG/M2, QWK
     Route: 041
     Dates: start: 20150416, end: 20150611
  2. ERBITUX [Suspect]
     Active Substance: CETUXIMAB
     Dosage: 560 MG, QWK
     Route: 041
     Dates: start: 20150416, end: 20150416
  3. ERBITUX [Suspect]
     Active Substance: CETUXIMAB
     Dosage: 350 MG/M2, QWK
     Route: 041
     Dates: start: 20150423, end: 20150611

REACTIONS (4)
  - Mucosal inflammation [Recovering/Resolving]
  - Interstitial lung disease [Recovering/Resolving]
  - Septic shock [Recovered/Resolved]
  - Radiation skin injury [Recovering/Resolving]

NARRATIVE: CASE EVENT DATE: 201505
